FAERS Safety Report 6071728-5 (Version None)
Quarter: 2009Q1

REPORT INFORMATION
  Report Type: 
  Country: None (occurrence: None)
  Receive Date: 20090209
  Receipt Date: 20090209
  Transmission Date: 20090719
  Serious: Yes (Hospitalization)
  Sender: FDA-Public Use
  Company Number: None

PATIENT
  Age: 63 Year
  Sex: Female
  Weight: 72.1219 kg

DRUGS (2)
  1. LAPATINIB [Suspect]
     Indication: BREAST CANCER
     Dosage: 1000 MG DAILY PO
     Route: 048
     Dates: start: 20081111, end: 20090105
  2. TRASTUZUMAB [Suspect]
     Indication: BREAST CANCER
     Dosage: 154MG WEEKLY IV
     Route: 042
     Dates: start: 20081111, end: 20081230

REACTIONS (5)
  - CATHETER THROMBOSIS [None]
  - COAGULOPATHY [None]
  - DIARRHOEA [None]
  - HYPOKALAEMIA [None]
  - INTERNATIONAL NORMALISED RATIO INCREASED [None]
